FAERS Safety Report 7323582-9 (Version None)
Quarter: 2011Q1

REPORT INFORMATION
  Report Type: 
  Country: None (occurrence: None)
  Receive Date: 20110301
  Receipt Date: 20110224
  Transmission Date: 20110831
  Serious: Yes (Hospitalization)
  Sender: FDA-Public Use
  Company Number: FR-KINGPHARMUSA00001-K201100200

PATIENT
  Age: 73 Year
  Sex: Male

DRUGS (9)
  1. SINTROM [Concomitant]
     Dosage: 1 MG, UNK
     Route: 048
  2. METFORMIN [Concomitant]
     Dosage: 1000 MG, QD
  3. ALTACE [Suspect]
     Dosage: 10 MG, QD
     Route: 048
     Dates: start: 20110110
  4. ALTACE [Suspect]
     Indication: HYPERTENSIVE CARDIOMYOPATHY
     Dosage: 10 MG, QD
     Route: 048
     Dates: start: 20101101, end: 20110105
  5. BISOPROLOL FUMARATE [Suspect]
     Indication: HYPERTENSIVE CARDIOMYOPATHY
     Dosage: 5 MG, QD
     Route: 048
     Dates: start: 20101101, end: 20110105
  6. LUVION [Suspect]
     Indication: HYPERTENSIVE CARDIOMYOPATHY
     Dosage: 50 MG, QOD
     Route: 048
     Dates: start: 20101101, end: 20110105
  7. NOVONORM [Concomitant]
     Indication: TYPE 2 DIABETES MELLITUS
     Dosage: 0.5 MG, QD
     Route: 048
  8. PANTORC [Concomitant]
     Dosage: 40 MG, QD
     Route: 048
  9. ESAPENT [Concomitant]
     Dosage: 1000 MG, QD
     Route: 048

REACTIONS (7)
  - ASTHENIA [None]
  - PALPITATIONS [None]
  - HYPOTENSION [None]
  - TACHYARRHYTHMIA [None]
  - ATRIAL FIBRILLATION [None]
  - HEART RATE IRREGULAR [None]
  - DYSPNOEA [None]
